FAERS Safety Report 6871431-5 (Version None)
Quarter: 2010Q3

REPORT INFORMATION
  Report Type: 
  Country: None (occurrence: None)
  Receive Date: 20100723
  Receipt Date: 20100714
  Transmission Date: 20110219
  Serious: Yes (Hospitalization, Other)
  Sender: FDA-Public Use
  Company Number: CA-ABBOTT-10P-028-0657395-00

PATIENT
  Sex: Female
  Weight: 73.548 kg

DRUGS (11)
  1. HUMIRA [Suspect]
     Indication: PSORIASIS
     Route: 058
     Dates: start: 20091022
  2. HUMULIN RAPID [Concomitant]
     Indication: DIABETES MELLITUS
     Dosage: SLIDING SCALE AT EACH MEAL
     Route: 058
  3. HUMALOG [Concomitant]
     Indication: DIABETES MELLITUS
     Dosage: 100 UNITS QAM, 95 UNITS QHS
     Route: 058
  4. PRILOSEC [Concomitant]
     Indication: PRODUCT USED FOR UNKNOWN INDICATION
     Route: 048
  5. APO-FERROUS FUMARATE [Concomitant]
     Indication: ANAEMIA
     Route: 048
  6. APO-FUROSEMIDE [Concomitant]
     Indication: DIURETIC THERAPY
     Route: 048
  7. NOVO-VENLAFAXINE XL [Concomitant]
     Indication: DEPRESSION
     Route: 048
  8. EZETROL [Concomitant]
     Indication: PRODUCT USED FOR UNKNOWN INDICATION
     Route: 048
  9. NOVO-SPIRITONE [Concomitant]
     Indication: DIURETIC THERAPY
     Route: 048
  10. CORTISONE [Concomitant]
     Indication: PSORIASIS
     Dosage: APPLIED TO PSORIASIS
     Route: 061
  11. VITAMIN D [Concomitant]
     Indication: VITAMIN SUPPLEMENTATION
     Route: 048

REACTIONS (5)
  - BLOOD POTASSIUM INCREASED [None]
  - FLUID RETENTION [None]
  - LIVER DISORDER [None]
  - RENAL DISORDER [None]
  - VARICES OESOPHAGEAL [None]
